FAERS Safety Report 9300538 (Version 1)
Quarter: 2013Q2

REPORT INFORMATION
  Report Type: Spontaneous
  Country: US (occurrence: None)
  Receive Date: 20130520
  Receipt Date: 20130520
  Transmission Date: 20140414
  Serious: No
  Sender: FDA-Public Use
  Company Number: None

PATIENT
  Age: 37 Year
  Sex: Male

DRUGS (1)
  1. LEVOFLOXACIN [Suspect]
     Dates: start: 20110609, end: 20110614

REACTIONS (8)
  - Liver injury [None]
  - Drug level above therapeutic [None]
  - Renal injury [None]
  - Nausea [None]
  - Fatigue [None]
  - Chromaturia [None]
  - Pyrexia [None]
  - Infection [None]
